FAERS Safety Report 9372201 (Version 2)
Quarter: 2013Q3

REPORT INFORMATION
  Report Type: Spontaneous
  Country: US (occurrence: US)
  Receive Date: 20130627
  Receipt Date: 20130723
  Transmission Date: 20140515
  Serious: No
  Sender: FDA-Public Use
  Company Number: US-PFIZER INC-2013189590

PATIENT
  Sex: Male

DRUGS (1)
  1. GABAPENTIN [Suspect]
     Dosage: 300 MG, UNK
     Dates: end: 201306

REACTIONS (6)
  - Mood swings [Unknown]
  - Fatigue [Unknown]
  - Diarrhoea [Unknown]
  - Somnolence [Unknown]
  - Constipation [Unknown]
  - Gastrointestinal disorder [Unknown]
